FAERS Safety Report 8523586-4 (Version None)
Quarter: 2012Q3

REPORT INFORMATION
  Report Type: 
  Country: None (occurrence: None)
  Receive Date: 20120709
  Receipt Date: 20120624
  Transmission Date: 20120928
  Serious: Yes (Other)
  Sender: FDA-Public Use
  Company Number: 2012-2958

PATIENT
  Age: 63 Year
  Sex: Female

DRUGS (10)
  1. CYMBALTA [Concomitant]
  2. UNSPECIFIED STOOL SOFTENER (DUCUSATE SODIUM) [Concomitant]
  3. AMYLASE [Concomitant]
  4. HYDROCHLOROTHIAZIDE [Concomitant]
  5. PERCOCET [Concomitant]
  6. CYTOMEL [Concomitant]
  7. PREVACID [Concomitant]
  8. LANREOTIDE AUTOGEL (LANREOTIDE) (LANREOTIDE ACETATE) [Suspect]
     Indication: CARCINOID TUMOUR
     Dosage: 120 MG (120 MG, 1 IN 3 WK), SUBCUTANEOUS
     Route: 058
     Dates: start: 20070708
  9. RAMIPRIL [Concomitant]
  10. PROTEASE [Concomitant]

REACTIONS (2)
  - INAPPROPRIATE SCHEDULE OF DRUG ADMINISTRATION [None]
  - DEHYDRATION [None]
